FAERS Safety Report 10928327 (Version 1)
Quarter: 2015Q1

REPORT INFORMATION
  Report Type: Spontaneous
  Country: US (occurrence: US)
  Receive Date: 20150319
  Receipt Date: 20150319
  Transmission Date: 20150721
  Serious: No
  Sender: FDA-Public Use
  Company Number: US-009507513-1501USA008798

PATIENT
  Sex: Female

DRUGS (2)
  1. ELAVIL [Suspect]
     Active Substance: AMITRIPTYLINE HYDROCHLORIDE
     Dosage: 10 MI BEFORE BEDTIME
     Route: 048
  2. DEPAKOTE [Concomitant]
     Active Substance: DIVALPROEX SODIUM
     Dosage: 2 TIME A DAY

REACTIONS (3)
  - Vision blurred [Unknown]
  - Meniere^s disease [Unknown]
  - Dizziness [Unknown]
